FAERS Safety Report 9388218 (Version 1)
Quarter: 2013Q3

REPORT INFORMATION
  Report Type: Spontaneous
  Country: US (occurrence: US)
  Receive Date: 20130708
  Receipt Date: 20130708
  Transmission Date: 20140515
  Serious: Yes (Hospitalization)
  Sender: FDA-Public Use
  Company Number: US-BRISTOL-MYERS SQUIBB COMPANY-19064872

PATIENT
  Age: 5 Decade
  Sex: Male

DRUGS (1)
  1. BYDUREON [Suspect]
     Indication: DIABETES MELLITUS

REACTIONS (4)
  - Blood glucose decreased [Unknown]
  - Wound [Unknown]
  - Sepsis [Unknown]
  - Respiratory disorder [Unknown]
